FAERS Safety Report 17412888 (Version 1)
Quarter: 2020Q1

REPORT INFORMATION
  Report Type: Spontaneous
  Country: GB (occurrence: GB)
  Receive Date: 20200213
  Receipt Date: 20200213
  Transmission Date: 20200409
  Serious: Yes (Hospitalization)
  Sender: FDA-Public Use
  Company Number: GB-ACCORD-172353

PATIENT
  Age: 73 Year
  Sex: Female

DRUGS (9)
  1. CLOPIDOGREL [Concomitant]
     Active Substance: CLOPIDOGREL BISULFATE
  2. ACICLOVIR [Concomitant]
     Active Substance: ACYCLOVIR
  3. ATENOLOL/ATENOLOL HYDROCHLORIDE [Concomitant]
     Active Substance: ATENOLOL HYDROCHLORIDE
  4. ATORVASTATIN [Concomitant]
     Active Substance: ATORVASTATIN
  5. LOPERAMIDE [Concomitant]
     Active Substance: LOPERAMIDE
  6. AMITRIPTYLINE [Suspect]
     Active Substance: AMITRIPTYLINE
     Indication: PAIN
     Route: 048
     Dates: start: 20200123, end: 20200125
  7. FAMOTIDINE. [Concomitant]
     Active Substance: FAMOTIDINE
  8. FLUCLOXACILLIN [Concomitant]
     Active Substance: FLUCLOXACILLIN
  9. RANITIDINE. [Concomitant]
     Active Substance: RANITIDINE

REACTIONS (2)
  - Inappropriate antidiuretic hormone secretion [Recovering/Resolving]
  - Blood sodium decreased [Unknown]
